FAERS Safety Report 8138841-X (Version None)
Quarter: 2012Q1

REPORT INFORMATION
  Report Type: 
  Country: None (occurrence: None)
  Receive Date: 20120215
  Receipt Date: 20120203
  Transmission Date: 20120608
  Serious: Yes (Other)
  Sender: FDA-Public Use
  Company Number: JP-ELI_LILLY_AND_COMPANY-JP201201002755

PATIENT
  Age: 64 Year
  Sex: Female
  Weight: 41 kg

DRUGS (12)
  1. FORTEO [Suspect]
     Indication: OSTEOPOROSIS
     Dosage: UNK UNK, QD
     Route: 058
     Dates: start: 20111026, end: 20111026
  2. BEZATOL [Concomitant]
     Indication: HYPERLIPIDAEMIA
     Dosage: 200 MG, UNK
     Route: 048
     Dates: start: 20110117
  3. ALFAROL [Concomitant]
     Indication: OSTEOPOROSIS
     Dosage: 0.25 UG, UNK
     Route: 048
     Dates: start: 20110601
  4. ASPARA-CA [Concomitant]
     Indication: OSTEOPOROSIS
     Dosage: 800 MG, UNK
     Route: 048
     Dates: start: 20110601
  5. FORTEO [Suspect]
     Dosage: UNK UNK, QD
     Route: 058
     Dates: start: 20111115, end: 20111115
  6. MUCODYNE [Concomitant]
     Indication: BRONCHITIS CHRONIC
     Dosage: 250 MG, UNK
     Route: 048
     Dates: start: 20110107
  7. CLARITHROMYCIN [Concomitant]
     Indication: BRONCHITIS CHRONIC
     Dosage: 200 MG, UNK
     Route: 048
     Dates: start: 20101210
  8. FERROUS CITRATE [Concomitant]
     Indication: IRON DEFICIENCY ANAEMIA
     Dosage: 50 MG, UNK
     Route: 048
     Dates: start: 20111005
  9. PROGRAF [Concomitant]
     Indication: RHEUMATOID ARTHRITIS
     Dosage: 1.5 MG, UNK
     Route: 048
     Dates: start: 20110126
  10. FORTEO [Suspect]
     Dosage: UNK UNK, QD
     Route: 058
     Dates: start: 20111114, end: 20111114
  11. LANSOPRAZOLE [Concomitant]
     Indication: PROPHYLAXIS
     Dosage: 15 MG, UNK
     Route: 048
     Dates: start: 20091216
  12. PREDNISOLONE [Concomitant]
     Indication: RHEUMATOID ARTHRITIS
     Dosage: 8 MG, UNK
     Route: 048
     Dates: start: 20110824

REACTIONS (1)
  - BACK PAIN [None]
